FAERS Safety Report 6318700-5 (Version None)
Quarter: 2009Q3

REPORT INFORMATION
  Report Type: 
  Country: None (occurrence: None)
  Receive Date: 20090819
  Receipt Date: 20090805
  Transmission Date: 20100115
  Serious: Yes (Hospitalization)
  Sender: FDA-Public Use
  Company Number: 1000005521

PATIENT
  Age: 79 Year
  Sex: Male

DRUGS (7)
  1. ESCITALOPRAM [Suspect]
     Indication: DEPRESSION
     Dosage: 20 MG (20 MG, 1 IN 1 D), ORAL
     Route: 048
     Dates: start: 20081201, end: 20090102
  2. DEPAKENE [Suspect]
     Indication: PROPHYLAXIS
     Dosage: 1000 MG (500 MG, 2 IN 1 D), ORAL
     Route: 048
     Dates: start: 20081201, end: 20090102
  3. MUPHORAN (SOLUTION) [Suspect]
     Indication: METASTATIC MALIGNANT MELANOMA
     Dosage: 25.7143 MG (180 MG, 1 IN 1 WK) INTRAVENOUS (NOT OTHERWISE SPECIFIED)
     Route: 042
     Dates: start: 20081113, end: 20081127
  4. LANZOR (CAPSULES) [Concomitant]
  5. FUROSEMIDE (TABLETS) [Concomitant]
  6. APROVEL (TABLETS) [Concomitant]
  7. TAHOR (TABLETS) [Concomitant]

REACTIONS (2)
  - HISTIOCYTOSIS HAEMATOPHAGIC [None]
  - PANCYTOPENIA [None]
